FAERS Safety Report 4694924-8 (Version None)
Quarter: 2005Q2

REPORT INFORMATION
  Report Type: 
  Country: None (occurrence: None)
  Receive Date: 20050620
  Receipt Date: 20050608
  Transmission Date: 20051028
  Serious: Yes (Other)
  Sender: FDA-Public Use
  Company Number: 2005085772

PATIENT
  Sex: Male

DRUGS (1)
  1. LISTERINE (MENTHOL, METHYL SALICYLATE, EUCALYPTOL, THYMOL) [Suspect]
     Dosage: 1 PINT QD, ORAL
     Route: 048
     Dates: start: 20050606, end: 20050608

REACTIONS (2)
  - ABDOMINAL PAIN UPPER [None]
  - INTENTIONAL MISUSE [None]
